FAERS Safety Report 13706398 (Version 1)
Quarter: 2017Q2

REPORT INFORMATION
  Report Type: Other
  Country: NL (occurrence: NL)
  Receive Date: 20170630
  Receipt Date: 20170630
  Transmission Date: 20170830
  Serious: Yes (Life-Threatening, Other)
  Sender: FDA-Public Use
  Company Number: NL-ACTELION-A-CH2017-155731

PATIENT
  Age: 36 Year
  Sex: Female

DRUGS (8)
  1. OPSUMIT [Concomitant]
     Active Substance: MACITENTAN
     Indication: PULMONARY ARTERIAL HYPERTENSION
     Dosage: UNK
  2. LEVOTHYROXINE. [Concomitant]
     Active Substance: LEVOTHYROXINE
     Dosage: UNK
  3. UPTRAVI [Suspect]
     Active Substance: SELEXIPAG
     Indication: PULMONARY ARTERIAL HYPERTENSION
     Route: 048
  4. EPOPROSTENOL SODIUM. [Suspect]
     Active Substance: EPOPROSTENOL SODIUM
     Indication: PULMONARY ARTERIAL HYPERTENSION
     Dosage: UNK
     Route: 042
  5. TRACLEER [Suspect]
     Active Substance: BOSENTAN
     Indication: PULMONARY ARTERIAL HYPERTENSION
     Route: 048
  6. SILDENAFIL. [Concomitant]
     Active Substance: SILDENAFIL
     Indication: PULMONARY ARTERIAL HYPERTENSION
     Dosage: UNK
  7. ESOMEPRAZOL [Concomitant]
     Active Substance: ESOMEPRAZOLE
     Dosage: UNK
  8. ACENOCOUMAROL [Concomitant]
     Active Substance: ACENOCOUMAROL
     Dosage: UNK

REACTIONS (18)
  - Diarrhoea [Unknown]
  - Chest discomfort [Unknown]
  - Pulmonary arterial pressure increased [Recovered/Resolved]
  - Headache [Unknown]
  - Loss of personal independence in daily activities [Not Recovered/Not Resolved]
  - Exposure during pregnancy [Unknown]
  - Haematoma [Unknown]
  - Dyspnoea [Unknown]
  - Patient dissatisfaction with device [Unknown]
  - Feeling jittery [Unknown]
  - Flushing [Unknown]
  - Erythema [Unknown]
  - Device dependence [Unknown]
  - Caesarean section [Unknown]
  - Normal newborn [Unknown]
  - Musculoskeletal discomfort [Unknown]
  - Injection site reaction [Recovered/Resolved]
  - Drug ineffective [Unknown]
